FAERS Safety Report 14435279 (Version 4)
Quarter: 2018Q1

REPORT INFORMATION
  Report Type: Report from Study
  Country: US (occurrence: US)
  Receive Date: 20180125
  Receipt Date: 20180320
  Transmission Date: 20180509
  Serious: Yes (Other)
  Sender: FDA-Public Use
  Company Number: US-AMGEN-USACT2018008685

PATIENT
  Age: 63 Year
  Sex: Male
  Weight: 72.1 kg

DRUGS (21)
  1. RAMIPRIL. [Concomitant]
     Active Substance: RAMIPRIL
     Dosage: 10 MG, UNK
     Route: 048
     Dates: start: 20170914
  2. LIDOCAINE. [Concomitant]
     Active Substance: LIDOCAINE
     Dosage: 10 ML, UNK
     Route: 058
     Dates: start: 20171027, end: 20171218
  3. MORPHINE [Concomitant]
     Active Substance: MORPHINE
     Indication: ABDOMINAL PAIN UPPER
     Dosage: 15 MG, UNK
     Route: 048
     Dates: start: 20171124
  4. LANTUS [Concomitant]
     Active Substance: INSULIN GLARGINE
     Dosage: 15 UNK, UNK (100 UNITS/ML)
     Route: 058
     Dates: start: 20170914
  5. ACETAMINOPHEN. [Concomitant]
     Active Substance: ACETAMINOPHEN
     Dosage: 650 MG, UNK
     Route: 048
     Dates: start: 20171027, end: 20171027
  6. OXYCODONE [Concomitant]
     Active Substance: OXYCODONE
     Indication: FATIGUE
  7. MORPHINE [Concomitant]
     Active Substance: MORPHINE
     Indication: FATIGUE
  8. GLUCOPHAGE [Concomitant]
     Active Substance: METFORMIN HYDROCHLORIDE
     Dosage: 1000 MUG, UNK
     Route: 048
     Dates: start: 20120111
  9. AMLODIPINE [Concomitant]
     Active Substance: AMLODIPINE BESYLATE
     Dosage: 10 MG, UNK
     Route: 048
     Dates: start: 20170320
  10. MOTRIN [Concomitant]
     Active Substance: IBUPROFEN
     Dosage: 600 MG, UNK
     Route: 048
     Dates: start: 20150803
  11. FENTANYL. [Concomitant]
     Active Substance: FENTANYL
     Dosage: 50-100 MUG, UNK
     Route: 042
     Dates: start: 20171027, end: 20171218
  12. OXYCODONE [Concomitant]
     Active Substance: OXYCODONE
     Indication: ABDOMINAL PAIN UPPER
     Dosage: 5-15 MG, UNK
     Route: 048
     Dates: start: 20171115
  13. ZOLPIDEM [Concomitant]
     Active Substance: ZOLPIDEM\ZOLPIDEM TARTRATE
     Dosage: 10 MG, UNK
     Route: 048
     Dates: start: 20170825
  14. ULORIC [Concomitant]
     Active Substance: FEBUXOSTAT
     Dosage: 40 MG, UNK
     Route: 048
     Dates: start: 20140709
  15. TALIMOGENE LAHERPAREPVEC [Suspect]
     Active Substance: TALIMOGENE LAHERPAREPVEC
     Dosage: 4 ML X 10E7 PFU/ML, UNK
     Route: 025
     Dates: start: 20170913, end: 20171218
  16. SODIUM CHLORIDE. [Concomitant]
     Active Substance: SODIUM CHLORIDE
     Dosage: 100 UNK, UNK
     Route: 042
     Dates: start: 20171027, end: 20171027
  17. MIDAZOLAM [Concomitant]
     Active Substance: MIDAZOLAM HYDROCHLORIDE
     Dosage: 1-2 MG, UNK
     Route: 042
     Dates: start: 20171027, end: 20171218
  18. TALIMOGENE LAHERPAREPVEC [Suspect]
     Active Substance: TALIMOGENE LAHERPAREPVEC
     Indication: HEPATOCELLULAR CARCINOMA
     Dosage: 2 ML X 10E6 PFU/ML, UNK
     Route: 025
     Dates: start: 20170825
  19. ADVIL [Concomitant]
     Active Substance: IBUPROFEN
     Dosage: 600 MG, UNK
     Route: 048
     Dates: start: 20150803
  20. PREVACID [Concomitant]
     Active Substance: LANSOPRAZOLE
     Dosage: 30 MG, UNK
     Route: 048
     Dates: start: 20170526
  21. SYNTHROID [Concomitant]
     Active Substance: LEVOTHYROXINE SODIUM
     Dosage: 150 MUG, UNK
     Route: 048
     Dates: start: 20170515

REACTIONS (1)
  - Blood alkaline phosphatase increased [Not Recovered/Not Resolved]

NARRATIVE: CASE EVENT DATE: 20180117
